FAERS Safety Report 4555656-X (Version None)
Quarter: 2005Q1

REPORT INFORMATION
  Report Type: 
  Country: None (occurrence: None)
  Receive Date: 20050118
  Receipt Date: 20050106
  Transmission Date: 20050727
  Serious: Yes (Hospitalization)
  Sender: FDA-Public Use
  Company Number: 4510

PATIENT
  Age: 22 Year
  Sex: Male

DRUGS (2)
  1. PROPAFENONE HCL [Suspect]
     Indication: ATRIAL FIBRILLATION
     Dosage: 600 MG ONE TIME DOSE IN ER
     Dates: start: 20041230
  2. CARDIZEM [Concomitant]

REACTIONS (3)
  - NAUSEA [None]
  - NEUROLOGICAL SYMPTOM [None]
  - VOMITING [None]
